FAERS Safety Report 10870426 (Version 1)
Quarter: 2015Q1

REPORT INFORMATION
  Report Type: Spontaneous
  Country: CA (occurrence: None)
  Receive Date: 20150223
  Receipt Date: 20150223
  Transmission Date: 20150721
  Serious: Yes (Other)
  Sender: FDA-Public Use
  Company Number: 2746129

PATIENT
  Sex: Female

DRUGS (2)
  1. HYDROMORPHONE HYDROCHLORIDE. [Suspect]
     Active Substance: HYDROMORPHONE HYDROCHLORIDE
     Route: 042
  2. DILAUDID [Suspect]
     Active Substance: HYDROMORPHONE HYDROCHLORIDE
     Route: 042

REACTIONS (10)
  - Insomnia [None]
  - Feeling cold [None]
  - Asthenia [None]
  - Drug abuse [None]
  - Drug dependence [None]
  - Hot flush [None]
  - Needle track marks [None]
  - Drug withdrawal syndrome [None]
  - Malaise [None]
  - Vomiting [None]
